FAERS Safety Report 7681780-9 (Version None)
Quarter: 2011Q3

REPORT INFORMATION
  Report Type: 
  Country: None (occurrence: None)
  Receive Date: 20110812
  Receipt Date: 20110803
  Transmission Date: 20111222
  Serious: Yes (Other)
  Sender: FDA-Public Use
  Company Number: US-ASTRAZENECA-2010SE21998

PATIENT
  Age: 86 Year
  Sex: Male

DRUGS (7)
  1. ZOCOR [Concomitant]
  2. NEXIUM [Suspect]
     Route: 048
  3. INSULIN [Concomitant]
  4. COREG [Concomitant]
  5. ZESTRIL [Suspect]
     Route: 048
  6. LASIX [Concomitant]
  7. ASPIRIN [Concomitant]
     Dosage: LOW DOSE

REACTIONS (4)
  - CARDIAC FAILURE CONGESTIVE [None]
  - COUGH [None]
  - WRONG DRUG ADMINISTERED [None]
  - DRUG DOSE OMISSION [None]
